FAERS Safety Report 4553567-7 (Version None)
Quarter: 2004Q4

REPORT INFORMATION
  Report Type: 
  Country: None (occurrence: None)
  Receive Date: 20041227
  Receipt Date: 20040901
  Transmission Date: 20050328
  Serious: No
  Sender: FDA-Public Use
  Company Number: 04P-163-0272037-00

PATIENT
  Age: 49 Year
  Sex: Female

DRUGS (3)
  1. HUMIRA [Suspect]
     Indication: RHEUMATOID ARTHRITIS
     Dosage: 40 MG, 1 IN 2 WK; 40 MG, 1 IN 1 WK : SUBCUTANEOUS
     Route: 058
     Dates: start: 20040718, end: 20040831
  2. HUMIRA [Suspect]
     Indication: RHEUMATOID ARTHRITIS
     Dosage: 40 MG, 1 IN 2 WK; 40 MG, 1 IN 1 WK : SUBCUTANEOUS
     Route: 058
     Dates: start: 20040831
  3. NAPROXEN [Concomitant]

REACTIONS (2)
  - DRUG INEFFECTIVE [None]
  - MYALGIA [None]
